FAERS Safety Report 8320854-6 (Version None)
Quarter: 2012Q2

REPORT INFORMATION
  Report Type: 
  Country: None (occurrence: None)
  Receive Date: 20120430
  Receipt Date: 20120416
  Transmission Date: 20120825
  Serious: Yes (Hospitalization)
  Sender: FDA-Public Use
  Company Number: KR-AMGEN-KORSP2011035724

PATIENT
  Age: 70 Year
  Sex: Female

DRUGS (13)
  1. CELECOXIB [Concomitant]
     Dosage: UNCERTAINTY
     Route: 065
  2. FAMOTIDINE [Concomitant]
     Dosage: UNCERTAINTY
     Route: 065
  3. CALCITRIOL [Concomitant]
     Dosage: UNCERTAINTY
     Route: 065
  4. MEGESTROL                          /00082602/ [Concomitant]
     Dosage: UNCERTAINTY
     Route: 065
  5. INDOBUFEN [Concomitant]
     Dosage: UNCERTAINTY
     Route: 065
  6. CARVEDILOL [Concomitant]
     Dosage: UNCERTAINTY
     Route: 065
  7. CALCIUM ACETATE [Concomitant]
     Dosage: UNCERTAINTY
     Route: 065
  8. CINACALCET HYDROCHLORIDE [Suspect]
     Indication: SECONDARY HYPERTHYROIDISM
     Dosage: 25 MG, UNK
     Route: 048
     Dates: start: 20110107, end: 20110303
  9. EPOGEN [Concomitant]
     Dosage: UNCERTAINTY
     Route: 065
  10. NIZATIDINE [Concomitant]
     Dosage: UNCERTAINTY
     Route: 065
  11. ITOPRIDE HYDROCHLORIDE [Concomitant]
     Dosage: UNCERTAINTY
     Route: 065
  12. ACETAMINOPHEN [Concomitant]
     Dosage: UNCERTAINTY
     Route: 065
  13. BENEXATE HYDROCHLORIDE BETADEX [Concomitant]
     Dosage: UNCERTAINTY
     Route: 065

REACTIONS (1)
  - HAEMOGLOBIN DECREASED [None]
